FAERS Safety Report 13599884 (Version 1)
Quarter: 2017Q2

REPORT INFORMATION
  Report Type: Spontaneous
  Country: US (occurrence: US)
  Receive Date: 20170531
  Receipt Date: 20170531
  Transmission Date: 20170830
  Serious: No
  Sender: FDA-Public Use
  Company Number: None

PATIENT
  Age: 15 Year
  Sex: Male

DRUGS (1)
  1. NUTROPIN AQ NUSPIN 10 [Suspect]
     Active Substance: SOMATROPIN
     Route: 058
     Dates: start: 20170505

REACTIONS (2)
  - Hypersomnia [None]
  - Fatigue [None]

NARRATIVE: CASE EVENT DATE: 20170531
